FAERS Safety Report 6408803-9 (Version None)
Quarter: 2009Q4

REPORT INFORMATION
  Report Type: 
  Country: None (occurrence: None)
  Receive Date: 20091021
  Receipt Date: 20091012
  Transmission Date: 20100525
  Serious: Yes (Life-Threatening)
  Sender: FDA-Public Use
  Company Number: B0595172A

PATIENT
  Sex: Male
  Weight: 108 kg

DRUGS (11)
  1. SERETIDE [Suspect]
     Indication: CHRONIC OBSTRUCTIVE PULMONARY DISEASE
     Route: 055
     Dates: start: 20090424, end: 20090514
  2. SERETIDE [Suspect]
     Dosage: 2PUFF TWICE PER DAY
     Route: 055
     Dates: start: 20090907, end: 20090918
  3. SYMBICORT [Suspect]
     Indication: DRUG USE FOR UNKNOWN INDICATION
     Route: 065
  4. WARFARIN SODIUM [Concomitant]
  5. SPIRIVA [Concomitant]
  6. PERINDOPRIL [Concomitant]
  7. SIMVASTATIN [Concomitant]
  8. AMLODIPINE [Concomitant]
  9. FUROSEMIDE [Concomitant]
  10. QVAR 40 [Concomitant]
  11. SEREVENT [Concomitant]

REACTIONS (5)
  - DYSPHONIA [None]
  - IMPAIRED DRIVING ABILITY [None]
  - MALAISE [None]
  - MUSCLE SPASMS [None]
  - ORAL CANDIDIASIS [None]
